FAERS Safety Report 9796864 (Version 2)
Quarter: 2015Q3

REPORT INFORMATION
  Report Type: Report from Study
  Country: GB (occurrence: GB)
  Receive Date: 20140103
  Receipt Date: 20150709
  Transmission Date: 20151125
  Serious: Yes (Life-Threatening, Hospitalization)
  Sender: FDA-Public Use
  Company Number: GB-ASTRAZENECA-2014SE00176

PATIENT
  Age: 22842 Day
  Sex: Male

DRUGS (3)
  1. RADIOTHERAPY [Suspect]
     Active Substance: RADIATION THERAPY
     Indication: METASTATIC MALIGNANT MELANOMA
     Dates: start: 20131125, end: 20131206
  2. DEXAMETHASONE. [Suspect]
     Active Substance: DEXAMETHASONE
  3. VANDETANIB. [Suspect]
     Active Substance: VANDETANIB
     Indication: METASTATIC MALIGNANT MELANOMA
     Route: 048
     Dates: start: 20131121, end: 20131211

REACTIONS (1)
  - Diverticular perforation [Recovered/Resolved]

NARRATIVE: CASE EVENT DATE: 20131221
